FAERS Safety Report 14675636 (Version 1)
Quarter: 2018Q1

REPORT INFORMATION
  Report Type: Spontaneous
  Country: CA (occurrence: CA)
  Receive Date: 20180323
  Receipt Date: 20180323
  Transmission Date: 20180509
  Serious: Yes (Other)
  Sender: FDA-Public Use
  Company Number: CA-PFIZER INC-2018118050

PATIENT
  Age: 71 Year
  Sex: Female

DRUGS (11)
  1. PREDNISONE. [Concomitant]
     Active Substance: PREDNISONE
     Route: 048
  2. METHOTREXATE SODIUM. [Suspect]
     Active Substance: METHOTREXATE SODIUM
     Dosage: 25 MG, WEEKLY
     Route: 058
  3. PLAQUENIL [Concomitant]
     Active Substance: HYDROXYCHLOROQUINE SULFATE
     Route: 048
  4. METOPROLOL. [Concomitant]
     Active Substance: METOPROLOL
     Route: 048
  5. ACTONEL [Concomitant]
     Active Substance: RISEDRONATE SODIUM
  6. CALCIUM [Concomitant]
     Active Substance: CALCIUM
  7. NEXIUM [Interacting]
     Active Substance: ESOMEPRAZOLE MAGNESIUM
     Dosage: 40 MG, 1X/DAY
     Route: 048
  8. ASPIRIN CHILDREN [Concomitant]
     Active Substance: ASPIRIN
     Route: 048
  9. NITROGLYCERIN. [Concomitant]
     Active Substance: NITROGLYCERIN
  10. VITAMIN D /00107901/ [Concomitant]
     Active Substance: ERGOCALCIFEROL
  11. DILTIAZEM. [Concomitant]
     Active Substance: DILTIAZEM
     Route: 048

REACTIONS (4)
  - Thrombocytosis [Not Recovered/Not Resolved]
  - Haemoglobin decreased [Not Recovered/Not Resolved]
  - Anaemia macrocytic [Not Recovered/Not Resolved]
  - Drug interaction [Not Recovered/Not Resolved]
